FAERS Safety Report 9328089 (Version 1)
Quarter: 2013Q2

REPORT INFORMATION
  Report Type: Spontaneous
  Country: US (occurrence: US)
  Receive Date: 20130604
  Receipt Date: 20130604
  Transmission Date: 20140414
  Serious: No
  Sender: FDA-Public Use
  Company Number: US-PFIZER INC-2013164434

PATIENT
  Age: 80 Year
  Sex: Male
  Weight: 72.56 kg

DRUGS (18)
  1. BOSULIF [Suspect]
     Indication: CHRONIC MYELOID LEUKAEMIA
     Dosage: 500 MG, 1X/DAY
     Route: 048
     Dates: start: 20130122, end: 20130523
  2. OXYCONTIN [Concomitant]
     Dosage: 20 MG, UNK
  3. TERBINAFINE [Concomitant]
     Dosage: 1 %, UNK
  4. CYMBALTA [Concomitant]
     Dosage: 60 MG, UNK
  5. COSOPT [Concomitant]
     Dosage: 2-0.5%, UNK
     Route: 047
  6. XALATAN [Concomitant]
     Dosage: 0.005 %, UNK
  7. NORVASC [Concomitant]
     Dosage: 2.5 MG, UNK
  8. TERAZOSIN [Concomitant]
     Dosage: 1 MG, UNK
  9. PREDNISONE [Concomitant]
     Dosage: 1 MG, UNK
  10. SIMVASTATIN [Concomitant]
     Dosage: 40 MG, UNK
  11. FINASTERIDE [Concomitant]
     Dosage: 1 MG, UNK
  12. THERAPEUTIC-M [Concomitant]
     Dosage: UNK
  13. TYLENOL [Concomitant]
     Dosage: 500 MG, UNK
  14. SENOKOT-S [Concomitant]
     Dosage: 8.6-50 MG, UNK
  15. ZYRTEC [Concomitant]
     Dosage: 5 MG, UNK
  16. CALTRATE [Concomitant]
     Dosage: 600 UNK,
  17. ASPIRIN [Suspect]
     Dosage: 325 MG, UNK
  18. AQUAPHOR HEALING [Suspect]

REACTIONS (4)
  - Rash generalised [Unknown]
  - Pollakiuria [Unknown]
  - Dysuria [Unknown]
  - Constipation [Unknown]
